FAERS Safety Report 6128133-2 (Version None)
Quarter: 2009Q1

REPORT INFORMATION
  Report Type: 
  Country: None (occurrence: None)
  Receive Date: 20090319
  Receipt Date: 20090309
  Transmission Date: 20090719
  Serious: Yes (Hospitalization)
  Sender: FDA-Public Use
  Company Number: CLOF-1000335

PATIENT
  Age: 67 Year

DRUGS (7)
  1. EVOLTRA (CLOFARABINE) SOLUTION FOR INFUSION [Suspect]
     Indication: ACUTE MYELOID LEUKAEMIA
     Dosage: 40 MG/M2, QD
     Dates: start: 20080920, end: 20080925
  2. DAUNORUBICIN HCL [Suspect]
     Indication: ACUTE MYELOID LEUKAEMIA
     Dosage: 97.5 MG, QOD
     Dates: start: 20080920, end: 20080924
  3. LATANOPROST [Concomitant]
  4. ALLOPURINOL [Concomitant]
  5. ITRACONAZOLE [Concomitant]
  6. ACYCLOVIR [Concomitant]
  7. ONDANSETRON HCL [Concomitant]

REACTIONS (2)
  - BONE MARROW FAILURE [None]
  - MYELOFIBROSIS [None]
